FAERS Safety Report 5677669-7 (Version None)
Quarter: 2008Q1

REPORT INFORMATION
  Report Type: 
  Country: None (occurrence: None)
  Receive Date: 20080324
  Receipt Date: 20070322
  Transmission Date: 20080703
  Serious: No
  Sender: FDA-Public Use
  Company Number: US-ABBOTT-07P-163-0362915-00

PATIENT
  Age: 87 Year
  Sex: Female
  Weight: 54.48 kg

DRUGS (3)
  1. DEPAKENE [Suspect]
     Indication: HALLUCINATION
     Route: 050
     Dates: start: 20061201
  2. ATENOLOL [Concomitant]
     Indication: CARDIOVASCULAR EVENT PROPHYLAXIS
     Route: 050
     Dates: start: 19970101
  3. RISPERIDONE [Concomitant]
     Indication: HALLUCINATION
     Route: 050
     Dates: start: 20061201

REACTIONS (1)
  - HYPERSOMNIA [None]
